FAERS Safety Report 7248904-9 (Version None)
Quarter: 2011Q1

REPORT INFORMATION
  Report Type: 
  Country: None (occurrence: None)
  Receive Date: 20110128
  Receipt Date: 20100416
  Transmission Date: 20110831
  Serious: Yes (Hospitalization)
  Sender: FDA-Public Use
  Company Number: US-BAYER-201017907NA

PATIENT
  Sex: Female
  Weight: 70 kg

DRUGS (20)
  1. AMOXCL [Concomitant]
     Indication: PRODUCT USED FOR UNKNOWN INDICATION
     Dates: start: 20080801
  2. YAZ [Suspect]
     Indication: MENSTRUAL CYCLE MANAGEMENT
     Dosage: UNK UNK, UNK
     Route: 048
     Dates: start: 20071001, end: 20080315
  3. ONDANSETRON [Concomitant]
     Indication: VOMITING
  4. BENZONATATE [Concomitant]
     Dates: start: 20080101
  5. CLARITHROMYCIN [Concomitant]
     Dates: start: 20080601
  6. LUTERA-28 [Concomitant]
     Dates: start: 20080401
  7. LOVENOX [Concomitant]
     Dates: start: 20080401
  8. ACETAMINOPHEN [Concomitant]
     Dosage: 325 AND 650 MG
     Route: 048
  9. YAZ [Suspect]
     Indication: OVARIAN CYST
  10. DOCUSATE SODIUM W/SENNA [Concomitant]
     Indication: CONSTIPATION
     Route: 048
  11. WARFARIN SODIUM [Concomitant]
     Indication: PRODUCT USED FOR UNKNOWN INDICATION
     Dates: start: 20080401, end: 20080915
  12. TRAMADOL HCL [Concomitant]
     Dates: start: 20080401
  13. AZITHROMYCIN [Concomitant]
     Dates: start: 20080501
  14. ONDANSETRON [Concomitant]
     Indication: NAUSEA
     Dosage: 4 MG (DAILY DOSE), ,
  15. AMOXICILLIN AND CLAVULANATE POTASSIUM [Concomitant]
     Dates: start: 20080801
  16. METRONIDAZOLE [Concomitant]
     Dates: start: 20080901
  17. FOLIC ACID [Concomitant]
     Route: 048
     Dates: start: 20080201, end: 20080315
  18. IBUPROFEN [Concomitant]
     Dates: start: 20080501
  19. MULTI-VITAMIN [Concomitant]
     Route: 048
     Dates: start: 20080201, end: 20080315
  20. HYDROCODONE [Concomitant]
     Dates: start: 20080401

REACTIONS (3)
  - PULMONARY EMBOLISM [None]
  - DYSPNOEA [None]
  - CHEST PAIN [None]
